FAERS Safety Report 20751097 (Version 1)
Quarter: 2022Q2

REPORT INFORMATION
  Report Type: Spontaneous
  Country: IL (occurrence: IL)
  Receive Date: 20220426
  Receipt Date: 20220426
  Transmission Date: 20220720
  Serious: Yes (Death, Hospitalization, Other)
  Sender: FDA-Public Use
  Company Number: IL-009507513-2204ISR006798

PATIENT
  Age: 37 Year
  Sex: Male

DRUGS (16)
  1. PEMBROLIZUMAB [Suspect]
     Active Substance: PEMBROLIZUMAB
     Indication: Neoplasm
     Dosage: 200 MILLIGRAM
     Route: 042
     Dates: start: 20220202, end: 20220222
  2. METAMIZOLE [Concomitant]
     Active Substance: METAMIZOLE
     Indication: Tumour pain
     Dosage: 500 MILLIGRAM, 1 AS REQUIRED
     Route: 048
     Dates: start: 202109, end: 20220301
  3. METAMIZOLE [Concomitant]
     Active Substance: METAMIZOLE
     Dosage: UNK
     Route: 042
  4. ENOXAPARIN SODIUM [Concomitant]
     Active Substance: ENOXAPARIN SODIUM
     Indication: Jugular vein thrombosis
     Dosage: 80 MILLIGRAM, BID
     Route: 058
     Dates: start: 20211124, end: 20220301
  5. OMEPRAZOLE [Concomitant]
     Active Substance: OMEPRAZOLE
     Indication: Supplementation therapy
     Dosage: 20 MILLIGRAM, QD
     Route: 048
     Dates: start: 20211215, end: 20220301
  6. DEXAMETHASONE [Concomitant]
     Active Substance: DEXAMETHASONE
     Indication: Tumour pain
     Dosage: 2 MILLIGRAM, QD
     Route: 048
     Dates: start: 20220122, end: 20220301
  7. PREGABALIN [Concomitant]
     Active Substance: PREGABALIN
     Indication: Tumour pain
     Dosage: 25 MILLIGRAM, BID
     Route: 048
     Dates: start: 20220118, end: 20220221
  8. PREGABALIN [Concomitant]
     Active Substance: PREGABALIN
     Dosage: 150 MILLIGRAM, BID
     Route: 048
     Dates: start: 20220222, end: 20220224
  9. PREGABALIN [Concomitant]
     Active Substance: PREGABALIN
     Dosage: 100 MILLIGRAM, BID
     Route: 048
     Dates: start: 20220225
  10. NORMALAX [MACROGOL 3350] [Concomitant]
     Indication: Constipation prophylaxis
     Dosage: 17 GRAM, QD
     Route: 048
     Dates: start: 20211202, end: 20220301
  11. FENTANYL [Concomitant]
     Active Substance: FENTANYL
     Indication: Tumour pain
     Dosage: CONTINUOS 100 MCG
     Route: 062
     Dates: start: 20220126, end: 20220215
  12. FENTANYL [Concomitant]
     Active Substance: FENTANYL
     Dosage: CONTINUOS 3600 MCG
     Route: 062
     Dates: start: 20220216, end: 20220221
  13. FENTANYL [Concomitant]
     Active Substance: FENTANYL
     Dosage: CONTINUOS 4200 MCG
     Route: 062
     Dates: start: 20220222
  14. OXYCODONE HYDROCHLORIDE [Concomitant]
     Active Substance: OXYCODONE HYDROCHLORIDE
     Indication: Tumour pain
     Dosage: UNK
     Dates: start: 20220118, end: 20220215
  15. OXYCODONE HYDROCHLORIDE [Concomitant]
     Active Substance: OXYCODONE HYDROCHLORIDE
     Dosage: 40 MILLIGRAM, AS REQUIRED
     Route: 048
     Dates: start: 20220216
  16. BISACODYL [Concomitant]
     Active Substance: BISACODYL
     Indication: Constipation prophylaxis
     Dosage: 10 MILLIGRAM, AS REQUIRED
     Route: 048
     Dates: start: 202112

REACTIONS (2)
  - Malignant neoplasm progression [Fatal]
  - Malignant neoplasm progression [Recovered/Resolved]

NARRATIVE: CASE EVENT DATE: 20220227
